FAERS Safety Report 24134755 (Version 1)
Quarter: 2024Q3

REPORT INFORMATION
  Report Type: Report from Study
  Country: US (occurrence: US)
  Receive Date: 20240725
  Receipt Date: 20240725
  Transmission Date: 20241017
  Serious: Yes (Hospitalization, Other)
  Sender: BAXTER
  Company Number: US-BAXTER-2024BAX021718

PATIENT
  Age: 55 Year
  Sex: Male
  Weight: 159.6 kg

DRUGS (10)
  1. CYCLOPHOSPHAMIDE [Suspect]
     Active Substance: CYCLOPHOSPHAMIDE
     Indication: Intestinal T-cell lymphoma stage IV
     Dosage: 750 MG/M2, DAY 1 OF CYCLES 1-6, (2120 MG), LAST DOSE OF PRIOR TO EVENT ONSET DATE
     Route: 042
     Dates: start: 20240229, end: 20240229
  2. CYCLOPHOSPHAMIDE [Suspect]
     Active Substance: CYCLOPHOSPHAMIDE
     Dosage: UNK, 1 CYCLE OF CHOP
     Route: 065
  3. DOXORUBICIN [Suspect]
     Active Substance: DOXORUBICIN
     Indication: Intestinal T-cell lymphoma stage IV
     Dosage: 50 MG/M2, DAY 1 OF CYCLES 1-6, (141 MG), LAST DOSE OF PRIOR TO EVENT ONSET DATE
     Route: 042
     Dates: start: 20240229, end: 20240229
  4. DOXORUBICIN [Suspect]
     Active Substance: DOXORUBICIN
     Dosage: UNK, 1 CYCLE OF CHOP
     Route: 065
  5. BRENTUXIMAB VEDOTIN [Suspect]
     Active Substance: BRENTUXIMAB VEDOTIN
     Indication: Intestinal T-cell lymphoma stage IV
     Dosage: 1.8 MG/KG DAY 1 OF CYCLES 1-6 AND 10 CYCLES OF CONSOLIDATION AFTER ASCT (180 MG, Q 21 DAYS), LAST DO
     Route: 042
     Dates: start: 20240229, end: 20240229
  6. ETOPOSIDE [Suspect]
     Active Substance: ETOPOSIDE
     Indication: Intestinal T-cell lymphoma stage IV
     Dosage: 100 MG/M2, DAYS 1-3 OF CYCLES 1-6, (282 MG), LAST DOSE OF PRIOR TO EVENT ONSET DATE
     Route: 042
     Dates: start: 20240229, end: 20240302
  7. PREDNISONE [Suspect]
     Active Substance: PREDNISONE
     Indication: Intestinal T-cell lymphoma stage IV
     Dosage: UNK
     Route: 065
  8. PREDNISONE [Suspect]
     Active Substance: PREDNISONE
     Dosage: UNK, 1 CYCLE OF CHOP
     Route: 065
  9. ONCOVIN [Concomitant]
     Active Substance: VINCRISTINE SULFATE
     Dosage: UNK
     Route: 065
  10. ONCOVIN [Concomitant]
     Active Substance: VINCRISTINE SULFATE
     Dosage: UNK, 1 CYCLE OF CHOP
     Route: 065

REACTIONS (3)
  - Lower gastrointestinal haemorrhage [Recovered/Resolved]
  - Diverticulitis [Recovered/Resolved]
  - Diarrhoea [Recovered/Resolved]

NARRATIVE: CASE EVENT DATE: 20240305
